FAERS Safety Report 5286318-1 (Version None)
Quarter: 2007Q2

REPORT INFORMATION
  Report Type: 
  Country: None (occurrence: None)
  Receive Date: 20070404
  Receipt Date: 20070330
  Transmission Date: 20071010
  Serious: Yes (Other)
  Sender: FDA-Public Use
  Company Number: GB-MERCK-0704GBR00009

PATIENT
  Age: 68 Year
  Sex: Female
  Weight: 75 kg

DRUGS (7)
  1. ZOCOR [Suspect]
     Indication: BLOOD CHOLESTEROL INCREASED
     Route: 048
     Dates: start: 20061220, end: 20070314
  2. AMLODIPINE BESYLATE [Concomitant]
     Indication: BLOOD PRESSURE
     Route: 048
  3. BUMETANIDE [Concomitant]
     Route: 048
  4. COVERSYL (PERINDOPRIL ARGININE) [Concomitant]
     Indication: BLOOD PRESSURE
     Route: 048
  5. FLUVOXAMINE MALEATE [Concomitant]
     Route: 048
  6. LEVOTHYROXINE SODIUM [Concomitant]
     Route: 048
  7. TEGRETOL [Concomitant]
     Indication: NEURALGIA
     Route: 048
     Dates: start: 20030801

REACTIONS (4)
  - ALOPECIA [None]
  - ASTHENIA [None]
  - FORMICATION [None]
  - PARAESTHESIA [None]
